FAERS Safety Report 25915952 (Version 1)
Quarter: 2025Q4

REPORT INFORMATION
  Report Type: Spontaneous
  Country: US (occurrence: US)
  Receive Date: 20251013
  Receipt Date: 20251013
  Transmission Date: 20260118
  Serious: Yes (Hospitalization)
  Sender: ABBVIE
  Company Number: US-ABBVIE-6499684

PATIENT

DRUGS (1)
  1. EMRELIS [Suspect]
     Active Substance: TELISOTUZUMAB VEDOTIN-TLLV
     Indication: Non-small cell lung cancer
     Dosage: FORM STRENGTH: 1.9 MILLIGRAM(S)/KILOGRAM
     Route: 042

REACTIONS (1)
  - Keratitis [Unknown]
